FAERS Safety Report 9644158 (Version 1)
Quarter: 2013Q4

REPORT INFORMATION
  Report Type: Spontaneous
  Country: FR (occurrence: FR)
  Receive Date: 20131024
  Receipt Date: 20131024
  Transmission Date: 20140711
  Serious: Yes (Hospitalization)
  Sender: FDA-Public Use
  Company Number: FR-UCBSA-100926

PATIENT
  Age: 55 Year
  Sex: Female

DRUGS (5)
  1. CIMZIA [Suspect]
     Route: 058
     Dates: end: 201306
  2. CIMZIA [Suspect]
     Dosage: 1ST DOSE 400 MG THEN 400 MG 2 AND 4 WEEKS LATER
     Route: 058
     Dates: start: 20121107
  3. METHOTREXATE [Suspect]
     Indication: RHEUMATOID ARTHRITIS
     Route: 058
     Dates: start: 2009
  4. METHOTREXATE [Suspect]
     Indication: RHEUMATOID ARTHRITIS
     Route: 048
     Dates: start: 2009, end: 2009
  5. METFORMIN [Concomitant]

REACTIONS (1)
  - Disseminated tuberculosis [Unknown]
